FAERS Safety Report 8132332-8 (Version None)
Quarter: 2012Q1

REPORT INFORMATION
  Report Type: 
  Country: None (occurrence: None)
  Receive Date: 20120213
  Receipt Date: 20111025
  Transmission Date: 20120608
  Serious: Yes (Other)
  Sender: FDA-Public Use
  Company Number: US-BRISTOL-MYERS SQUIBB COMPANY-15101959

PATIENT
  Age: 42 Year
  Sex: Female

DRUGS (23)
  1. DOCUSATE [Concomitant]
  2. HYDROXYZINE [Concomitant]
  3. TRIAMTERENE AND HYDROCHLOROTHIAZIDE [Concomitant]
  4. LORAZEPAM [Concomitant]
  5. SPIRONOLACTONE [Concomitant]
  6. VALSARTAN [Concomitant]
  7. SULFADIAZINE [Suspect]
  8. MITOTANE [Suspect]
     Indication: ADRENOCORTICAL CARCINOMA
     Dosage: 1G TID,1500 MG TID,2G TID (1500 MGTID)
     Route: 048
     Dates: start: 20091217
  9. AMLODIPINE [Concomitant]
  10. ZYRTEC [Concomitant]
  11. TRIAMCINOLONE [Concomitant]
  12. PERCOCET [Concomitant]
  13. CLONIDINE [Concomitant]
  14. METOCLOPRAMIDE [Concomitant]
  15. ONDANSETRON [Concomitant]
  16. SORAFENIB [Concomitant]
  17. CLOTRIMAZOLE [Concomitant]
  18. FAMOTIDINE [Concomitant]
  19. COMPAZINE [Concomitant]
  20. HYDROMORPHONE HCL [Concomitant]
  21. CODEINE SULFATE [Suspect]
  22. LISINOPRIL [Concomitant]
  23. NYSTATIN [Concomitant]

REACTIONS (2)
  - RASH PRURITIC [None]
  - DRUG INEFFECTIVE [None]
